FAERS Safety Report 7999493-2 (Version None)
Quarter: 2011Q4

REPORT INFORMATION
  Report Type: 
  Country: None (occurrence: None)
  Receive Date: 20111221
  Receipt Date: 20111214
  Transmission Date: 20120403
  Serious: No
  Sender: FDA-Public Use
  Company Number: US-PFIZER INC-2011305418

PATIENT
  Sex: Male

DRUGS (3)
  1. CHANTIX [Suspect]
     Dosage: UNK
  2. LETAIRIS [Suspect]
     Indication: PULMONARY HYPERTENSION
     Dosage: 10 MG, UNK
     Route: 048
  3. REVATIO [Suspect]
     Indication: PULMONARY HYPERTENSION
     Dosage: UNK

REACTIONS (3)
  - DIARRHOEA [None]
  - DIZZINESS [None]
  - NAUSEA [None]
